FAERS Safety Report 16389561 (Version 1)
Quarter: 2019Q2

REPORT INFORMATION
  Report Type: Report from Study
  Country: FR (occurrence: FR)
  Receive Date: 20190604
  Receipt Date: 20190604
  Transmission Date: 20190711
  Serious: Yes (Hospitalization)
  Sender: FDA-Public Use
  Company Number: FR-BAYER-2019-102458

PATIENT
  Age: 65 Year
  Sex: Male

DRUGS (5)
  1. DIAMICRON [Concomitant]
     Active Substance: GLICLAZIDE
     Indication: TYPE 2 DIABETES MELLITUS
     Dosage: DAILY DOSE 30 MG
     Dates: start: 2017
  2. METFORMIN [Concomitant]
     Active Substance: METFORMIN HYDROCHLORIDE
     Indication: TYPE 2 DIABETES MELLITUS
     Dosage: 1000 MG, BID
     Dates: start: 2017
  3. LASILIX [FUROSEMIDE] [Concomitant]
     Active Substance: FUROSEMIDE
     Indication: ASCITES
     Dosage: DAILY DOSE 40 MG
     Dates: start: 20190204, end: 20190329
  4. STIVARGA [Suspect]
     Active Substance: REGORAFENIB
     Indication: HEPATOCELLULAR CARCINOMA
     Dosage: DAILY DOSE 160 MG
     Dates: start: 20190204
  5. LASILIX [FUROSEMIDE] [Concomitant]
     Active Substance: FUROSEMIDE
     Indication: ASCITES
     Dosage: DAILY DOSE 20 MG
     Dates: start: 20190330

REACTIONS (2)
  - Anal ulcer [Recovering/Resolving]
  - Hyperaesthesia [Recovering/Resolving]

NARRATIVE: CASE EVENT DATE: 20190301
